FAERS Safety Report 5919035-2 (Version None)
Quarter: 2008Q4

REPORT INFORMATION
  Report Type: 
  Country: None (occurrence: None)
  Receive Date: 20081014
  Receipt Date: 20081014
  Transmission Date: 20090506
  Serious: Yes (Life-Threatening)
  Sender: FDA-Public Use
  Company Number: None

PATIENT
  Age: 66 Year
  Sex: Male
  Weight: 85.2762 kg

DRUGS (1)
  1. ADVAIR DISKUS 250/50 [Suspect]
     Indication: PULMONARY FUNCTION TEST ABNORMAL
     Dosage: ONE ONCE A DAY, 3MONTHSWEK
     Dates: start: 20080814, end: 20081011

REACTIONS (2)
  - DYSPNOEA [None]
  - ILL-DEFINED DISORDER [None]
